FAERS Safety Report 14664822 (Version 3)
Quarter: 2018Q2

REPORT INFORMATION
  Report Type: Spontaneous
  Country: BR (occurrence: BR)
  Receive Date: 20180321
  Receipt Date: 20180411
  Transmission Date: 20180711
  Serious: Yes (Hospitalization)
  Sender: FDA-Public Use
  Company Number: BR-SA-2018SA077150

PATIENT
  Age: 46 Year
  Sex: Male
  Weight: 52 kg

DRUGS (1)
  1. LEMTRADA [Suspect]
     Active Substance: ALEMTUZUMAB
     Indication: MULTIPLE SCLEROSIS
     Route: 041
     Dates: start: 201712, end: 201712

REACTIONS (2)
  - Herpes zoster [Recovered/Resolved]
  - Blister [Recovered/Resolved]
